FAERS Safety Report 20732882 (Version 1)
Quarter: 2022Q2

REPORT INFORMATION
  Report Type: Spontaneous
  Country: JP (occurrence: JP)
  Receive Date: 20220420
  Receipt Date: 20220420
  Transmission Date: 20220721
  Serious: Yes (Other)
  Sender: FDA-Public Use
  Company Number: JP-NOVARTISPH-NVSJ2022JP088967

PATIENT
  Sex: Female

DRUGS (3)
  1. METFORMIN HYDROCHLORIDE\VILDAGLIPTIN [Suspect]
     Active Substance: METFORMIN HYDROCHLORIDE\VILDAGLIPTIN
     Indication: Type 2 diabetes mellitus
     Dosage: 1DF:VILDAGLIPTIN 50MG/METFORMIN HYDROCHLORIDE 250MG, FOR MORE THAN 1 YEAR
     Route: 048
  2. IMEGLIMIN [Suspect]
     Active Substance: IMEGLIMIN
     Indication: Diabetes mellitus inadequate control
     Dosage: 2 DOSAGE FORM, BID, TWO TABLETS IN THE MORNING AND EVENING
     Route: 048
  3. IMEGLIMIN [Suspect]
     Active Substance: IMEGLIMIN
     Dosage: 2 DOSAGE FORM, QD, 2 TABLETS AT NIGHT
     Route: 048

REACTIONS (3)
  - Diabetes mellitus inadequate control [Recovered/Resolved]
  - Renal impairment [Unknown]
  - Nausea [Recovered/Resolved]
